FAERS Safety Report 7115799-3 (Version None)
Quarter: 2010Q4

REPORT INFORMATION
  Report Type: 
  Country: None (occurrence: None)
  Receive Date: 20101118
  Receipt Date: 20101118
  Transmission Date: 20110411
  Serious: Yes (Disabling)
  Sender: FDA-Public Use
  Company Number: None

PATIENT
  Age: 57 Year
  Sex: Female
  Weight: 85.2762 kg

DRUGS (4)
  1. PRAVACHOL [Suspect]
     Indication: BLOOD CHOLESTEROL INCREASED
     Dosage: 40/20/10 MG 1 DAY ORAL 047
     Route: 048
     Dates: start: 20090813, end: 20091010
  2. PRAVACHOL [Suspect]
     Indication: BLOOD TRIGLYCERIDES INCREASED
     Dosage: 40/20/10 MG 1 DAY ORAL 047
     Route: 048
     Dates: start: 20090813, end: 20091010
  3. PRAVACHOL [Suspect]
     Indication: BLOOD CHOLESTEROL INCREASED
     Dosage: 10 MG 1 DAY ORAL 047
     Route: 048
     Dates: start: 20091115, end: 20091125
  4. PRAVACHOL [Suspect]
     Indication: BLOOD TRIGLYCERIDES INCREASED
     Dosage: 10 MG 1 DAY ORAL 047
     Route: 048
     Dates: start: 20091115, end: 20091125

REACTIONS (9)
  - ERYTHEMA NODOSUM [None]
  - GAIT DISTURBANCE [None]
  - MALAISE [None]
  - MIGRAINE [None]
  - MUSCLE SPASMS [None]
  - MYALGIA [None]
  - PERIARTHRITIS [None]
  - RHEUMATOID ARTHRITIS [None]
  - SERUM SICKNESS [None]
